FAERS Safety Report 14494023 (Version 1)
Quarter: 2018Q1

REPORT INFORMATION
  Report Type: Report from Study
  Country: DE (occurrence: DE)
  Receive Date: 20180206
  Receipt Date: 20180206
  Transmission Date: 20180509
  Serious: Yes (Death, Life-Threatening, Hospitalization)
  Sender: FDA-Public Use
  Company Number: DE-PFIZER INC-2017527918

PATIENT
  Age: 76 Year
  Sex: Male

DRUGS (14)
  1. GEMCITABINE HYDROCHLORIDE. [Suspect]
     Active Substance: GEMCITABINE HYDROCHLORIDE
     Indication: PANCREATIC CARCINOMA
     Dosage: 500 MG, UNK
  2. GEMCITABINE HYDROCHLORIDE. [Suspect]
     Active Substance: GEMCITABINE HYDROCHLORIDE
     Dosage: 500 MG, UNK
     Dates: end: 20171102
  3. ABRAXANE [Suspect]
     Active Substance: PACLITAXEL
     Indication: PANCREATIC CARCINOMA
     Dosage: UNK
     Route: 041
  4. IRBESARTAN/HCT [Concomitant]
     Dosage: 1 DF, 1X/DAY
  5. L-THYROXIN [Concomitant]
     Active Substance: LEVOTHYROXINE SODIUM
     Dosage: 125 UG, 1X/DAY
  6. TINZAPARIN [Concomitant]
     Active Substance: TINZAPARIN
     Indication: THROMBOSIS
     Dosage: 1 DF, 1X/DAY
     Route: 058
  7. L-THYROXIN [Concomitant]
     Active Substance: LEVOTHYROXINE SODIUM
     Dosage: 100 UG, 1X/DAY
  8. LANTUS [Concomitant]
     Active Substance: INSULIN GLARGINE
     Indication: HYPOGLYCAEMIA
     Dosage: 24 IU, 1X/DAY
  9. IBUPROFEN. [Concomitant]
     Active Substance: IBUPROFEN
     Dosage: 400 MG, UNK
  10. CLOPIDOGREL [Concomitant]
     Active Substance: CLOPIDOGREL BISULFATE
     Dosage: 75 MG, 1X/DAY
  11. NOVORAPID [Concomitant]
     Active Substance: INSULIN ASPART
     Dosage: 1 IU, 40 MG/DL
  12. ASA [Concomitant]
     Active Substance: ASPIRIN
     Dosage: 100 MG, 1X/DAY
  13. ABRAXANE [Suspect]
     Active Substance: PACLITAXEL
     Dosage: 1131.3 MG, UNK
     Route: 041
     Dates: start: 20170601, end: 20171102
  14. TAMSULOSIN [Concomitant]
     Active Substance: TAMSULOSIN
     Dosage: 0.4 MG, 1X/DAY

REACTIONS (3)
  - Pain in extremity [Fatal]
  - Dyspnoea [Fatal]
  - Platelet count decreased [Fatal]

NARRATIVE: CASE EVENT DATE: 20171109
